FAERS Safety Report 7885236 (Version 2)
Quarter: 2019Q1

REPORT INFORMATION
  Report Type: Spontaneous
  Country: GB (occurrence: GB)
  Receive Date: 20110405
  Receipt Date: 20190221
  Transmission Date: 20190418
  Serious: Yes (Disabling, Other)
  Sender: FDA-Public Use
  Company Number: GB-PFIZER INC-2011072503

PATIENT
  Age: 59 Year
  Sex: Female
  Weight: 57 kg

DRUGS (2)
  1. DICLOFENAC SODIUM. [Concomitant]
     Active Substance: DICLOFENAC SODIUM
     Dosage: UNK
     Dates: start: 20101125
  2. CHAMPIX [Suspect]
     Active Substance: VARENICLINE TARTRATE
     Dosage: UNK
     Dates: start: 20110203, end: 20110302

REACTIONS (3)
  - Diplopia [Unknown]
  - Chest discomfort [Unknown]
  - Vision blurred [Recovered/Resolved]

NARRATIVE: CASE EVENT DATE: 2011
